FAERS Safety Report 18689066 (Version 1)
Quarter: 2020Q4

REPORT INFORMATION
  Report Type: Report from Study
  Country: US (occurrence: US)
  Receive Date: 20201231
  Receipt Date: 20201231
  Transmission Date: 20210114
  Serious: Yes (Other)
  Sender: FDA-Public Use
  Company Number: US-JAZZ-2020-US-013443

PATIENT
  Sex: Female

DRUGS (57)
  1. XYREM [Suspect]
     Active Substance: SODIUM OXYBATE
     Dosage: 2.25 GRAM, BID
     Route: 048
     Dates: start: 201202, end: 201203
  2. MORPHINE SULFATE. [Concomitant]
     Active Substance: MORPHINE SULFATE
  3. VITAMIN D3 [Concomitant]
     Active Substance: CHOLECALCIFEROL
  4. LEVOTHYROXINE. [Concomitant]
     Active Substance: LEVOTHYROXINE
  5. HYDROMORPHONE [Concomitant]
     Active Substance: HYDROMORPHONE
  6. MOVANTIK [Concomitant]
     Active Substance: NALOXEGOL OXALATE
  7. VITAMIN B12 [Concomitant]
     Active Substance: CYANOCOBALAMIN
  8. DEPAKOTE [Concomitant]
     Active Substance: DIVALPROEX SODIUM
  9. PANTOPRAZOLE SODIUM. [Concomitant]
     Active Substance: PANTOPRAZOLE SODIUM
  10. ALPRAZOLAM. [Concomitant]
     Active Substance: ALPRAZOLAM
  11. XYREM [Suspect]
     Active Substance: SODIUM OXYBATE
     Indication: NARCOLEPSY
     Dosage: 3 GRAM, BID
     Route: 048
     Dates: start: 200306, end: 200307
  12. XYREM [Suspect]
     Active Substance: SODIUM OXYBATE
     Dosage: DOSE ADJUSTMENT
     Route: 048
     Dates: start: 201203, end: 201308
  13. TRAMADOL HCL [Concomitant]
     Active Substance: TRAMADOL HYDROCHLORIDE
  14. CAMBIA [Concomitant]
     Active Substance: DICLOFENAC POTASSIUM
  15. CYANOCOBALAMIN. [Concomitant]
     Active Substance: CYANOCOBALAMIN
  16. IBUPROFEN. [Concomitant]
     Active Substance: IBUPROFEN
  17. AMOXICILLIN. [Concomitant]
     Active Substance: AMOXICILLIN
  18. GABAPENTIN. [Concomitant]
     Active Substance: GABAPENTIN
  19. VOLTAREN [DICLOFENAC] [Concomitant]
     Active Substance: DICLOFENAC SODIUM
  20. DOXYCYCLINE. [Concomitant]
     Active Substance: DOXYCYCLINE
  21. FUROSEMIDE. [Concomitant]
     Active Substance: FUROSEMIDE
  22. TRULANCE [Concomitant]
     Active Substance: PLECANATIDE
  23. DOXYCYCLINE HYCLATE. [Concomitant]
     Active Substance: DOXYCYCLINE HYCLATE
  24. LAMICTAL [Concomitant]
     Active Substance: LAMOTRIGINE
  25. SILVADENE [Concomitant]
     Active Substance: SILVER SULFADIAZINE
  26. ZOVIRAX [Concomitant]
     Active Substance: ACYCLOVIR
  27. XYREM [Suspect]
     Active Substance: SODIUM OXYBATE
     Dosage: 6 GRAM, BID
     Route: 048
     Dates: start: 200307, end: 200402
  28. XYREM [Suspect]
     Active Substance: SODIUM OXYBATE
     Dosage: 9 GRAM, BID
     Route: 048
     Dates: start: 200407, end: 200603
  29. ESTRADIOL. [Concomitant]
     Active Substance: ESTRADIOL
  30. METHADONE HCL [Concomitant]
     Active Substance: METHADONE HYDROCHLORIDE
  31. TIZANIDINE HCL [Concomitant]
     Active Substance: TIZANIDINE HYDROCHLORIDE
  32. CLONAZEPAM. [Concomitant]
     Active Substance: CLONAZEPAM
  33. XYZAL [Concomitant]
     Active Substance: LEVOCETIRIZINE DIHYDROCHLORIDE
  34. NUCYNTA [Concomitant]
     Active Substance: TAPENTADOL HYDROCHLORIDE
  35. VIIBRYD [Concomitant]
     Active Substance: VILAZODONE HYDROCHLORIDE
  36. ABILIFY [Concomitant]
     Active Substance: ARIPIPRAZOLE
  37. FOLIC ACID. [Concomitant]
     Active Substance: FOLIC ACID
  38. SYMBICORT [Concomitant]
     Active Substance: BUDESONIDE\FORMOTEROL FUMARATE DIHYDRATE
  39. XYREM [Suspect]
     Active Substance: SODIUM OXYBATE
     Dosage: 4.5 GRAM, BID
     Route: 048
     Dates: start: 201308
  40. PREGABALIN. [Concomitant]
     Active Substance: PREGABALIN
  41. ZYPREXA [Concomitant]
     Active Substance: OLANZAPINE
  42. CLONIDINE HCL [Concomitant]
     Active Substance: CLONIDINE HYDROCHLORIDE
  43. MOTRIN IB [Concomitant]
     Active Substance: IBUPROFEN
  44. A-HYDROCORT [Concomitant]
     Active Substance: HYDROCORTISONE SODIUM SUCCINATE
  45. SPIRONOLACTONE. [Concomitant]
     Active Substance: SPIRONOLACTONE
  46. FENTANYL. [Concomitant]
     Active Substance: FENTANYL
  47. BUSPIRONE HCL [Concomitant]
     Active Substance: BUSPIRONE HYDROCHLORIDE
  48. LANSOPRAZOLE. [Concomitant]
     Active Substance: LANSOPRAZOLE
  49. OXYCODONE HYDROCHLORIDE. [Concomitant]
     Active Substance: OXYCODONE HYDROCHLORIDE
  50. FOLBIC [Concomitant]
     Active Substance: CYANOCOBALAMIN\FOLIC ACID\PYRIDOXINE
  51. METOPROLOL SUCCINATE. [Concomitant]
     Active Substance: METOPROLOL SUCCINATE
  52. ASPIRIN EC [Concomitant]
     Active Substance: ASPIRIN
  53. BYSTOLIC [Concomitant]
     Active Substance: NEBIVOLOL HYDROCHLORIDE
  54. ENALAPRIL MALEATE. [Concomitant]
     Active Substance: ENALAPRIL MALEATE
  55. OLANZAPINE. [Concomitant]
     Active Substance: OLANZAPINE
  56. HYDROCORTISONE. [Concomitant]
     Active Substance: HYDROCORTISONE
  57. NARCAN [Concomitant]
     Active Substance: NALOXONE HYDROCHLORIDE

REACTIONS (3)
  - Sinus disorder [Not Recovered/Not Resolved]
  - Back pain [Unknown]
  - Myofascial pain syndrome [Not Recovered/Not Resolved]
